FAERS Safety Report 15770159 (Version 1)
Quarter: 2018Q4

REPORT INFORMATION
  Report Type: Spontaneous
  Country: US (occurrence: US)
  Receive Date: 20181227
  Receipt Date: 20181227
  Transmission Date: 20190205
  Serious: Yes (Hospitalization)
  Sender: FDA-Public Use
  Company Number: None

PATIENT
  Age: 71 Year
  Sex: Male

DRUGS (1)
  1. CAPECITABINE TABLETS [Suspect]
     Active Substance: CAPECITABINE
     Indication: OESOPHAGEAL CARCINOMA
     Route: 048

REACTIONS (4)
  - Bacterial infection [None]
  - Blood phosphorus decreased [None]
  - Diarrhoea [None]
  - Fluid retention [None]

NARRATIVE: CASE EVENT DATE: 20181121
